FAERS Safety Report 8168004-3 (Version None)
Quarter: 2012Q1

REPORT INFORMATION
  Report Type: 
  Country: None (occurrence: None)
  Receive Date: 20120222
  Receipt Date: 20120206
  Transmission Date: 20120608
  Serious: Yes (Hospitalization)
  Sender: FDA-Public Use
  Company Number: 2011-0296

PATIENT
  Age: 39 Year
  Sex: Female
  Weight: 95 kg

DRUGS (7)
  1. SOMATULINE DEPOT [Suspect]
     Indication: ACROMEGALY
     Dosage: SEE IMAGE
     Route: 058
     Dates: start: 20110201, end: 20110901
  2. SOMATULINE DEPOT [Suspect]
     Indication: ACROMEGALY
     Dosage: SEE IMAGE
     Route: 058
     Dates: start: 20111101
  3. SOMATULINE DEPOT [Suspect]
     Indication: ACROMEGALY
     Dosage: SEE IMAGE
     Route: 058
     Dates: start: 20110130, end: 20110130
  4. BISMUTH SUBSALICYLATE [Suspect]
     Indication: ABDOMINAL PAIN UPPER
     Dosage: 1 TBS EVERY HOUR UNTIL 8 DOSES (8 DOSAGE FORMS, 1 IN 1 D)
     Dates: start: 20110130, end: 20110130
  5. LEVOTHYROXINE SODIUM [Concomitant]
  6. GAS-X (DIMETICONE, ACTIVATED) [Concomitant]
  7. NYQUIL (MEDINITE) [Suspect]
     Indication: NASOPHARYNGITIS
     Dates: start: 20110130

REACTIONS (14)
  - OROPHARYNGEAL PAIN [None]
  - HEADACHE [None]
  - DIARRHOEA [None]
  - VISION BLURRED [None]
  - NAUSEA [None]
  - VOMITING [None]
  - DRUG INEFFECTIVE [None]
  - INJECTION SITE REACTION [None]
  - GALLBLADDER DISORDER [None]
  - INJECTION SITE PAIN [None]
  - ABDOMINAL PAIN [None]
  - INJECTION SITE PRURITUS [None]
  - NASOPHARYNGITIS [None]
  - DRY EYE [None]
